FAERS Safety Report 13523383 (Version 3)
Quarter: 2018Q2

REPORT INFORMATION
  Report Type: Spontaneous
  Country: US (occurrence: US)
  Receive Date: 20170508
  Receipt Date: 20180614
  Transmission Date: 20180711
  Serious: Yes (Death)
  Sender: FDA-Public Use
  Company Number: US-VIFOR (INTERNATIONAL) INC.-VIT-2017-03097

PATIENT
  Age: 78 Year
  Sex: Female

DRUGS (23)
  1. CALCIUM [Concomitant]
     Active Substance: CALCIUM
  2. IRON [Concomitant]
     Active Substance: IRON
  3. SODIUM BICARBONATE. [Concomitant]
     Active Substance: SODIUM BICARBONATE
  4. TRAMADOL. [Concomitant]
     Active Substance: TRAMADOL
  5. CALCITRIOL. [Concomitant]
     Active Substance: CALCITRIOL
  6. OXYCODONE [Concomitant]
     Active Substance: OXYCODONE
  7. NEURONTIN [Concomitant]
     Active Substance: GABAPENTIN
  8. OMEPRAZOLE. [Concomitant]
     Active Substance: OMEPRAZOLE
  9. PROCRIT [Concomitant]
     Active Substance: ERYTHROPOIETIN
  10. TACROLIMUS. [Concomitant]
     Active Substance: TACROLIMUS
  11. NEPRO [Concomitant]
     Active Substance: DIETARY SUPPLEMENT
  12. NIFEDIPINE. [Concomitant]
     Active Substance: NIFEDIPINE
  13. MAGNESIUM OXIDE. [Concomitant]
     Active Substance: MAGNESIUM OXIDE
  14. METOPROLOL SUCCINATE. [Concomitant]
     Active Substance: METOPROLOL SUCCINATE
  15. ATORVASTATIN [Concomitant]
     Active Substance: ATORVASTATIN
  16. AMARYL [Concomitant]
     Active Substance: GLIMEPIRIDE
  17. ERGOCALCIFEROL. [Concomitant]
     Active Substance: ERGOCALCIFEROL
  18. CELLCEPT [Concomitant]
     Active Substance: MYCOPHENOLATE MOFETIL\MYCOPHENOLATE MOFETIL HYDROCHLORIDE
     Route: 042
  19. ERGOCALCIFEROL. [Concomitant]
     Active Substance: ERGOCALCIFEROL
  20. METOPROLOL. [Concomitant]
     Active Substance: METOPROLOL
  21. VELTASSA [Suspect]
     Active Substance: PATIROMER
     Indication: HYPERKALAEMIA
     Route: 048
  22. LIPITOR [Concomitant]
     Active Substance: ATORVASTATIN CALCIUM
  23. LASIX [Concomitant]
     Active Substance: FUROSEMIDE

REACTIONS (2)
  - Living in residential institution [Unknown]
  - Death [Fatal]

NARRATIVE: CASE EVENT DATE: 20180607
